FAERS Safety Report 10038869 (Version 2)
Quarter: 2014Q1

REPORT INFORMATION
  Report Type: Spontaneous
  Country: IT (occurrence: IT)
  Receive Date: 20140326
  Receipt Date: 20140328
  Transmission Date: 20141002
  Serious: Yes (Other)
  Sender: FDA-Public Use
  Company Number: PHHY2014IT035723

PATIENT
  Age: 2 Year
  Sex: Female

DRUGS (1)
  1. EXJADE [Suspect]
     Indication: THALASSAEMIA BETA
     Dosage: 35 MG/KG
     Route: 048
     Dates: start: 201305, end: 20140221

REACTIONS (5)
  - Hyperammonaemia [Recovering/Resolving]
  - Coma [Recovering/Resolving]
  - Fanconi syndrome acquired [Recovering/Resolving]
  - Renal tubular necrosis [Recovering/Resolving]
  - Serum ferritin increased [Unknown]
